FAERS Safety Report 6432331-8 (Version None)
Quarter: 2009Q4

REPORT INFORMATION
  Report Type: 
  Country: None (occurrence: None)
  Receive Date: 20091109
  Receipt Date: 20091027
  Transmission Date: 20100525
  Serious: No
  Sender: FDA-Public Use
  Company Number: US-B.I. PHARMACEUTICALS,INC./RIDGEFIELD-2009-BP-10876BP

PATIENT
  Age: 77 Year
  Sex: Male

DRUGS (2)
  1. FLOMAX [Suspect]
     Indication: BENIGN PROSTATIC HYPERPLASIA
     Dosage: 0.4 MG
     Dates: start: 20030101
  2. MULTI-VITAMIN [Concomitant]

REACTIONS (5)
  - CONFUSIONAL STATE [None]
  - FAECAL INCONTINENCE [None]
  - POLLAKIURIA [None]
  - RESIDUAL URINE [None]
  - URINARY INCONTINENCE [None]
